FAERS Safety Report 10430481 (Version 1)
Quarter: 2014Q3

REPORT INFORMATION
  Report Type: Spontaneous
  Country: US (occurrence: None)
  Receive Date: 20140903
  Receipt Date: 20140903
  Transmission Date: 20150326
  Serious: Yes (Disabling)
  Sender: FDA-Public Use
  Company Number: None

PATIENT
  Age: 57 Year
  Sex: Female

DRUGS (1)
  1. COPAXONE [Suspect]
     Active Substance: GLATIRAMER ACETATE

REACTIONS (5)
  - Peripheral coldness [None]
  - Chills [None]
  - Asthenia [None]
  - Muscle spasms [None]
  - Gait disturbance [None]

NARRATIVE: CASE EVENT DATE: 20140828
